FAERS Safety Report 24716379 (Version 1)
Quarter: 2024Q4

REPORT INFORMATION
  Report Type: Spontaneous
  Country: US (occurrence: US)
  Receive Date: 20241210
  Receipt Date: 20241210
  Transmission Date: 20250115
  Serious: Yes (Hospitalization)
  Sender: ABBVIE
  Company Number: US-ABBVIE-6031849

PATIENT
  Age: 38 Year

DRUGS (2)
  1. CANASA [Suspect]
     Active Substance: MESALAMINE
     Indication: Product used for unknown indication
     Route: 065
  2. PREDNISONE [Suspect]
     Active Substance: PREDNISONE
     Indication: Product used for unknown indication
     Route: 065

REACTIONS (6)
  - Bloody discharge [Unknown]
  - Secretion discharge [Unknown]
  - Flank pain [Unknown]
  - General symptom [Not Recovered/Not Resolved]
  - Drug ineffective [Unknown]
  - Drug ineffective [Unknown]
